FAERS Safety Report 9060768 (Version 7)
Quarter: 2013Q3

REPORT INFORMATION
  Report Type: Spontaneous
  Country: US (occurrence: US)
  Receive Date: 20130204
  Receipt Date: 20130711
  Transmission Date: 20140515
  Serious: Yes (Disabling, Other)
  Sender: FDA-Public Use
  Company Number: US-009507513-1206USA05389

PATIENT
  Sex: Female
  Weight: 76.64 kg

DRUGS (16)
  1. FOSAMAX [Suspect]
     Indication: OSTEOPOROSIS
     Dosage: 70 MG QW
     Route: 048
     Dates: start: 20020508
  2. ALLOPURINOL [Concomitant]
     Indication: GOUT
     Dosage: 100-300 MG, QD
     Route: 048
     Dates: start: 200112, end: 201206
  3. VIOXX [Concomitant]
     Indication: PAIN
     Dosage: 25 MG, QD
     Route: 048
  4. VIOXX [Concomitant]
     Dosage: 50 MG, PRN
  5. PAXIL [Concomitant]
     Indication: PRODUCT USED FOR UNKNOWN INDICATION
     Dosage: 40 MG, QD
     Route: 048
  6. HYZAAR [Concomitant]
     Indication: HYPERTENSION
     Dosage: 50/12.5 MG QD
     Route: 048
     Dates: start: 200205
  7. ATIVAN [Concomitant]
     Indication: PRODUCT USED FOR UNKNOWN INDICATION
     Dosage: 1 MG,QD PRN
     Route: 048
  8. CYANOCOBALAMIN [Concomitant]
     Indication: PRODUCT USED FOR UNKNOWN INDICATION
     Dosage: MONTHLY
  9. FLEXERIL [Concomitant]
     Indication: BACK PAIN
     Dosage: 10 MG, QD PRN
  10. METFORMIN [Concomitant]
     Indication: DIABETES MELLITUS
     Dosage: 1000MG BID BEFORE MEALS
     Route: 048
     Dates: start: 2000
  11. TESSALON [Concomitant]
     Indication: PRODUCT USED FOR UNKNOWN INDICATION
     Dosage: 100 MG, QD
     Route: 048
  12. SKELAXIN [Concomitant]
     Indication: MUSCLE SPASMS
     Dosage: 400 MG, BID
     Route: 048
  13. ACIPHEX [Concomitant]
     Indication: PRODUCT USED FOR UNKNOWN INDICATION
     Dosage: 20 MG, QD
     Route: 048
  14. ZOCOR [Concomitant]
     Indication: BLOOD CHOLESTEROL INCREASED
     Dosage: 40-80 MG HS
     Route: 048
     Dates: start: 200205
  15. COMBIVENT [Concomitant]
     Indication: PRODUCT USED FOR UNKNOWN INDICATION
  16. FLOVENT [Concomitant]
     Indication: PRODUCT USED FOR UNKNOWN INDICATION

REACTIONS (78)
  - Thyroid nodule removal [Unknown]
  - Osteonecrosis of jaw [Unknown]
  - Tooth extraction [Unknown]
  - Oral disorder [Unknown]
  - Glomerulonephritis [Unknown]
  - Thyroid neoplasm [Unknown]
  - Acute sinusitis [Unknown]
  - Sebaceous cyst excision [Unknown]
  - Oral infection [Unknown]
  - Oral surgery [Unknown]
  - Depression [Not Recovered/Not Resolved]
  - Anxiety [Not Recovered/Not Resolved]
  - Tooth disorder [Unknown]
  - Debridement [Unknown]
  - Osteoarthritis [Unknown]
  - Tooth extraction [Unknown]
  - Dental caries [Unknown]
  - Jaw disorder [Unknown]
  - Tooth extraction [Unknown]
  - Tooth fracture [Unknown]
  - Sinus polyp [Unknown]
  - Cardiac murmur [Unknown]
  - Cardiomegaly [Unknown]
  - Emphysema [Unknown]
  - Sinusitis [Unknown]
  - Temporomandibular joint syndrome [Unknown]
  - Jaw operation [Recovered/Resolved]
  - Coronary artery disease [Unknown]
  - Malocclusion [Unknown]
  - Tooth erosion [Unknown]
  - Dental caries [Unknown]
  - Tooth fracture [Unknown]
  - Gingival recession [Unknown]
  - Periodontitis [Unknown]
  - Angina pectoris [Unknown]
  - Ear pain [Unknown]
  - Nasal vestibulitis [Unknown]
  - Myofascial pain syndrome [Unknown]
  - Joint dislocation [Unknown]
  - Osteomyelitis drainage [Unknown]
  - Biopsy bone [Unknown]
  - Stress [Unknown]
  - Migraine [Unknown]
  - Marital problem [Unknown]
  - Gastrointestinal disorder [Unknown]
  - Hysterectomy [Unknown]
  - Ovarian cystectomy [Unknown]
  - Laparoscopy [Unknown]
  - Hiatus hernia [Unknown]
  - Hepatitis [Unknown]
  - Tooth fracture [Unknown]
  - Toothache [Unknown]
  - Device failure [Unknown]
  - Sensitivity of teeth [Unknown]
  - Gouty arthritis [Unknown]
  - Gout [Recovered/Resolved]
  - Eye pain [Unknown]
  - Vision blurred [Unknown]
  - Radiculitis lumbosacral [Unknown]
  - Spinal compression fracture [Unknown]
  - Blood creatinine increased [Unknown]
  - Tooth fracture [Unknown]
  - Spinal compression fracture [Not Recovered/Not Resolved]
  - Cyst [Unknown]
  - Ear pain [Unknown]
  - Sinusitis [Unknown]
  - Inflammation [Unknown]
  - Spinal compression fracture [Unknown]
  - Osteoradionecrosis [Unknown]
  - Osteomyelitis [Recovered/Resolved]
  - Malaise [Unknown]
  - Local swelling [Unknown]
  - Headache [Unknown]
  - Neck pain [Unknown]
  - Musculoskeletal pain [Unknown]
  - Headache [Unknown]
  - Dysphagia [Unknown]
  - Vertigo [Unknown]
